FAERS Safety Report 6758790-9 (Version None)
Quarter: 2010Q2

REPORT INFORMATION
  Report Type: 
  Country: None (occurrence: None)
  Receive Date: 20100603
  Receipt Date: 20100525
  Transmission Date: 20101027
  Serious: Yes (Other)
  Sender: FDA-Public Use
  Company Number: TPG2009A00990

PATIENT
  Age: 72 Year
  Sex: Male

DRUGS (10)
  1. CANDESARTAN CILEXETIL [Suspect]
     Indication: HYPERTENSION
     Dosage: 16 MG PER ORAL
     Route: 048
     Dates: start: 20090928, end: 20100121
  2. ACTOS [Suspect]
     Indication: DIABETES MELLITUS
     Dosage: 15 MG PER ORAL, 30 MG PER ORAL
     Route: 048
     Dates: start: 20081101, end: 20090901
  3. ACTOS [Suspect]
     Indication: DIABETES MELLITUS
     Dosage: 15 MG PER ORAL, 30 MG PER ORAL
     Route: 048
     Dates: start: 20090928, end: 20091214
  4. ACTOS [Suspect]
     Indication: DIABETES MELLITUS
     Dosage: 15 MG PER ORAL, 30 MG PER ORAL
     Route: 048
     Dates: start: 20091201
  5. AGGRENOX [Concomitant]
  6. SIMVASTATIN [Concomitant]
  7. GLIMEPIRIDE [Concomitant]
  8. CARVEDILOL [Concomitant]
  9. TORSEMIDE [Concomitant]
  10. SODIUM POLYSTYRENE SULFONATE [Concomitant]

REACTIONS (1)
  - HYPERKALAEMIA [None]
